FAERS Safety Report 6446400-X (Version None)
Quarter: 2009Q4

REPORT INFORMATION
  Report Type: 
  Country: None (occurrence: None)
  Receive Date: 20091119
  Receipt Date: 20091116
  Transmission Date: 20100525
  Serious: No
  Sender: FDA-Public Use
  Company Number: US-B.I. PHARMACEUTICALS,INC./RIDGEFIELD-2009-BP-13365BP

PATIENT
  Sex: Female

DRUGS (5)
  1. SPIRIVA [Suspect]
     Indication: CHRONIC OBSTRUCTIVE PULMONARY DISEASE
     Dosage: 18 MCG
     Route: 055
     Dates: start: 20091110
  2. ADVAIR DISKUS 100/50 [Concomitant]
     Indication: CHRONIC OBSTRUCTIVE PULMONARY DISEASE
     Route: 055
     Dates: start: 20090928, end: 20091110
  3. CELEBREX [Concomitant]
     Indication: ARTHRITIS
  4. METOPROLOL [Concomitant]
     Indication: HYPERTENSION
     Dates: start: 19990101
  5. XANAX [Concomitant]
     Indication: ANXIETY
     Dates: start: 20080101

REACTIONS (1)
  - DIZZINESS [None]
